FAERS Safety Report 12451663 (Version 3)
Quarter: 2016Q3

REPORT INFORMATION
  Report Type: Spontaneous
  Country: US (occurrence: US)
  Receive Date: 20160609
  Receipt Date: 20160809
  Transmission Date: 20161109
  Serious: Yes (Hospitalization)
  Sender: FDA-Public Use
  Company Number: PHEH2016US013706

PATIENT
  Sex: Female
  Weight: 53.61 kg

DRUGS (3)
  1. DROSPIRENONE [Concomitant]
     Active Substance: DROSPIRENONE
     Indication: PRODUCT USED FOR UNKNOWN INDICATION
     Dosage: 1 DF, QD
     Route: 065
  2. ETHINYLESTRADIOL [Concomitant]
     Active Substance: ETHINYL ESTRADIOL
     Indication: PRODUCT USED FOR UNKNOWN INDICATION
     Dosage: 1 DF, QD
  3. LAMISIL [Suspect]
     Active Substance: TERBINAFINE HYDROCHLORIDE
     Indication: NAIL DISORDER
     Dosage: 250 MG, UNK (90 TABLETS)
     Route: 048
     Dates: start: 20160222

REACTIONS (5)
  - Nausea [Unknown]
  - Pancreatitis [Recovering/Resolving]
  - Abdominal pain upper [Unknown]
  - Product use issue [Unknown]
  - Constipation [Unknown]
